FAERS Safety Report 7623794-0 (Version None)
Quarter: 2011Q3

REPORT INFORMATION
  Report Type: 
  Country: None (occurrence: None)
  Receive Date: 20110719
  Receipt Date: 20110719
  Transmission Date: 20111222
  Serious: No
  Sender: FDA-Public Use
  Company Number: None

PATIENT
  Weight: 112.3 kg

DRUGS (2)
  1. LYRICA [Suspect]
     Indication: PARTIAL SEIZURES
     Dosage: 50MG TWICE DAILY BY MOUTH
     Route: 048
     Dates: start: 20110705, end: 20110706
  2. LYRICA [Suspect]
     Indication: NEURALGIA
     Dosage: 50MG TWICE DAILY BY MOUTH
     Route: 048
     Dates: start: 20110705, end: 20110706

REACTIONS (13)
  - SOMNOLENCE [None]
  - THINKING ABNORMAL [None]
  - PHARYNGEAL OEDEMA [None]
  - HEART RATE INCREASED [None]
  - FLATULENCE [None]
  - DYSARTHRIA [None]
  - VISION BLURRED [None]
  - DIZZINESS [None]
  - VERTIGO [None]
  - DYSPNOEA [None]
  - MEMORY IMPAIRMENT [None]
  - COORDINATION ABNORMAL [None]
  - BLOOD PRESSURE INCREASED [None]
